FAERS Safety Report 6426421-3 (Version None)
Quarter: 2009Q4

REPORT INFORMATION
  Report Type: 
  Country: None (occurrence: None)
  Receive Date: 20091104
  Receipt Date: 20091021
  Transmission Date: 20100525
  Serious: Yes (Hospitalization, Other)
  Sender: FDA-Public Use
  Company Number: PHHY2009JP46121

PATIENT
  Sex: Female

DRUGS (21)
  1. DIOVAN T30230+TAB+HY [Suspect]
     Dosage: 40 MG, QD
     Route: 048
     Dates: start: 20080926, end: 20090903
  2. DIOVAN T30230+TAB+HY [Suspect]
     Dosage: 80 MG, QD
     Route: 048
     Dates: start: 20090904
  3. ADALAT CC [Concomitant]
     Indication: HYPERTENSION
     Dosage: 20 MG, UNK
     Route: 048
     Dates: start: 20080926
  4. SELOKEN [Concomitant]
     Indication: HYPERTENSION
     Dosage: 80 MG, UNK
     Route: 048
     Dates: start: 20090511, end: 20090608
  5. CONIEL [Concomitant]
     Indication: HYPERTENSION
     Dosage: 4 MG, UNK
     Route: 048
     Dates: start: 20090424, end: 20090717
  6. RENIVEZE [Concomitant]
     Indication: HYPERTENSION
     Dosage: 25 MG, UNK
     Route: 048
     Dates: start: 20090914
  7. CALCIUM CARBONATE [Concomitant]
     Dosage: 1500 MG, UNK
     Route: 048
     Dates: start: 20080926
  8. CALCIUM CARBONATE [Concomitant]
     Dosage: 3000 MG, UNK
     Route: 048
  9. NESP [Concomitant]
     Dosage: 40 UG, UNK
     Route: 042
     Dates: start: 20090810
  10. DIART [Concomitant]
     Dosage: 30 MG, UNK
     Route: 048
     Dates: start: 20080926
  11. OMEPRAL [Concomitant]
     Dosage: 20 MG, UNK
     Route: 048
     Dates: start: 20080926
  12. AMOBAN [Concomitant]
     Dosage: 7.5 MG, UNK
     Route: 048
     Dates: start: 20080926
  13. PURSENNID [Concomitant]
     Dosage: 24 MG, UNK
     Route: 048
     Dates: start: 20080926, end: 20090527
  14. ZESULAN [Concomitant]
     Dosage: 2 DF, UNK
     Route: 048
     Dates: start: 20080926
  15. TRANCOLON [Concomitant]
     Dosage: 22.5 MG, UNK
     Route: 048
     Dates: start: 20080926, end: 20090410
  16. RISUMIC [Concomitant]
     Dosage: 20 MG, UNK
     Route: 048
     Dates: start: 20080926, end: 20090501
  17. EPOGIN [Concomitant]
     Dosage: 9000 IU, UNK
     Route: 042
     Dates: start: 20080926, end: 20090809
  18. FESIN [Concomitant]
     Dosage: UNK
     Route: 042
     Dates: start: 20080926, end: 20081109
  19. OXAROL [Concomitant]
     Dosage: 15 UG, UNK
     Route: 042
     Dates: start: 20090223
  20. FOSRENOL [Concomitant]
     Dosage: 750 MG, UNK
     Route: 048
     Dates: start: 20090530
  21. ASPIRIN [Concomitant]
     Dosage: 100 MG, UNK
     Route: 048
     Dates: start: 20090616

REACTIONS (5)
  - ANGIOPLASTY [None]
  - BLOOD CREATININE INCREASED [None]
  - BLOOD UREA INCREASED [None]
  - SHUNT MALFUNCTION [None]
  - SHUNT OCCLUSION [None]
